FAERS Safety Report 5237602-9 (Version None)
Quarter: 2007Q1

REPORT INFORMATION
  Report Type: 
  Country: None (occurrence: None)
  Receive Date: 20070213
  Receipt Date: 20070203
  Transmission Date: 20070707
  Serious: Yes (Other)
  Sender: FDA-Public Use
  Company Number: US-PFIZER INC-2007010126

PATIENT
  Age: 77 Year
  Sex: Female
  Weight: 77.1 kg

DRUGS (5)
  1. CADUET [Suspect]
     Dosage: TEXT:10/20MG
     Dates: start: 20070101, end: 20070101
  2. PREVACID [Concomitant]
  3. LASIX [Concomitant]
  4. ZOLOFT [Concomitant]
  5. ASPIRIN [Concomitant]

REACTIONS (3)
  - ADVERSE EVENT [None]
  - BONE PAIN [None]
  - OEDEMA PERIPHERAL [None]
